FAERS Safety Report 8321238-7 (Version None)
Quarter: 2012Q2

REPORT INFORMATION
  Report Type: 
  Country: None (occurrence: None)
  Receive Date: 20120430
  Receipt Date: 20120419
  Transmission Date: 20120825
  Serious: Yes (Hospitalization, Other)
  Sender: FDA-Public Use
  Company Number: US-BRISTOL-MYERS SQUIBB COMPANY-15316458

PATIENT
  Age: 59 Year
  Sex: Male

DRUGS (14)
  1. HYDROCHLOROTHIAZIDE [Concomitant]
     Indication: BLOOD PRESSURE MANAGEMENT
     Dosage: 1 TABLET EVERY MORNING
     Route: 048
     Dates: start: 20000530, end: 20101004
  2. PROCHLORPERAZINE MALEATE [Concomitant]
     Indication: NAUSEA
     Route: 048
     Dates: start: 20100929
  3. VITAMIN D [Concomitant]
     Indication: VITAMIN SUPPLEMENTATION
     Dosage: 1DF=2000 UNITS NOT SPECIFIED
     Dates: start: 20100728
  4. PROCHLORPERAZINE MALEATE [Concomitant]
     Indication: VOMITING
     Route: 048
     Dates: start: 20100929
  5. OMEPRAZOLE [Concomitant]
     Indication: GASTROOESOPHAGEAL REFLUX DISEASE
     Dosage: 1 CAPSULE DAILY
     Route: 048
     Dates: start: 20070101
  6. ONDANSETRON HCL [Concomitant]
     Indication: VOMITING
     Dosage: 1 TABLET AS NEEDED
     Route: 048
  7. IPILIMUMAB [Suspect]
     Indication: MALIGNANT MELANOMA
     Dosage: NO OF COURSES:3 22SEP10
     Route: 042
     Dates: start: 20100810, end: 20101027
  8. FLUTICASONE FUROATE [Concomitant]
     Indication: HYPERSENSITIVITY
     Dosage: 2 SPRAYS IN EACH NOSTRILS DAILY 25MCG/DAY
     Route: 045
     Dates: start: 20050101
  9. ZOLPIDEM [Concomitant]
     Indication: INSOMNIA
     Dosage: 1 TABLET DAILY AT BED TIME  1HR
     Route: 048
     Dates: start: 20101004
  10. SODIUM CHLORIDE [Concomitant]
     Indication: DIARRHOEA
     Dosage: IV SOLN,NACL 0.9% IV PREMIX 1 LITER IV PUSH ON 29-SEP-2010.
     Route: 040
     Dates: start: 20100929, end: 20100929
  11. ATENOLOL [Concomitant]
     Indication: BLOOD PRESSURE
     Dosage: TAKE 1 TABLET
     Route: 048
     Dates: start: 20000530
  12. AMLODIPINE [Concomitant]
     Indication: BLOOD PRESSURE
     Dosage: TAKE 1 TABLET
     Route: 048
     Dates: start: 20000530, end: 20101004
  13. LISINOPRIL [Concomitant]
     Indication: BLOOD PRESSURE INCREASED
     Dosage: TAKE 1 TABLET
     Route: 048
     Dates: start: 20101004
  14. SOLU-MEDROL [Concomitant]
     Indication: DIARRHOEA
     Dosage: INJECTION
     Route: 042

REACTIONS (6)
  - HYPERKALAEMIA [None]
  - HYPONATRAEMIA [None]
  - DEHYDRATION [None]
  - COLITIS [None]
  - DIARRHOEA [None]
  - RENAL FAILURE ACUTE [None]
